FAERS Safety Report 11220671 (Version 1)
Quarter: 2015Q2

REPORT INFORMATION
  Report Type: Spontaneous
  Country: US (occurrence: US)
  Receive Date: 20150626
  Receipt Date: 20150626
  Transmission Date: 20150821
  Serious: No
  Sender: FDA-Public Use
  Company Number: US-BRISTOL-MYERS SQUIBB COMPANY-BMS-2015-042041

PATIENT
  Sex: Female
  Weight: 77 kg

DRUGS (3)
  1. WARFARIN SODIUM. [Suspect]
     Active Substance: WARFARIN SODIUM
     Dosage: 3 MG, QOD
     Route: 065
     Dates: start: 2015
  2. WARFARIN SODIUM. [Suspect]
     Active Substance: WARFARIN SODIUM
     Indication: PRODUCT USED FOR UNKNOWN INDICATION
     Dosage: 4 MG, QOD
     Route: 065
     Dates: start: 2015
  3. REGRANEX [Suspect]
     Active Substance: BECAPLERMIN
     Indication: WOUND
     Dosage: UNK, QWK
     Route: 061
     Dates: start: 2015, end: 2015

REACTIONS (7)
  - Burning sensation [Unknown]
  - Urticaria [Unknown]
  - Insomnia [Unknown]
  - Peripheral swelling [Unknown]
  - Pruritus [Unknown]
  - Skin ulcer [Unknown]
  - Scab [Unknown]

NARRATIVE: CASE EVENT DATE: 2015
